FAERS Safety Report 5447811-1 (Version None)
Quarter: 2007Q3

REPORT INFORMATION
  Report Type: 
  Country: None (occurrence: None)
  Receive Date: 20070910
  Receipt Date: 20070830
  Transmission Date: 20080115
  Serious: Yes (Hospitalization)
  Sender: FDA-Public Use
  Company Number: BR-PFIZER INC-2007036687

PATIENT
  Sex: Female

DRUGS (9)
  1. SU-011,248 [Suspect]
     Indication: METASTATIC RENAL CELL CARCINOMA
     Route: 048
  2. LEVOTHYROXINE SODIUM [Concomitant]
     Indication: HYPOTHYROIDISM
     Route: 048
     Dates: start: 20060914, end: 20070430
  3. OMEPRAZOLE [Concomitant]
     Route: 048
     Dates: start: 20061124, end: 20070430
  4. OMEPRAZOLE [Concomitant]
     Route: 048
     Dates: start: 20070514, end: 20070529
  5. OMEPRAZOLE [Concomitant]
     Route: 042
     Dates: start: 20070501, end: 20070513
  6. DIMENHYDRINATE [Concomitant]
     Route: 042
     Dates: start: 20070505, end: 20070512
  7. ONDANSETRON [Concomitant]
     Route: 042
  8. METOCLOPRAMIDE [Concomitant]
     Route: 042
     Dates: start: 20070501, end: 20070504
  9. HEPARIN [Concomitant]
     Route: 058
     Dates: start: 20070501, end: 20070529

REACTIONS (2)
  - GENITAL HERPES [None]
  - NECROTISING FASCIITIS [None]
